FAERS Safety Report 24335756 (Version 2)
Quarter: 2024Q3

REPORT INFORMATION
  Report Type: Spontaneous
  Country: GB (occurrence: GB)
  Receive Date: 20240919
  Receipt Date: 20240921
  Transmission Date: 20241017
  Serious: Yes (Hospitalization, Other)
  Sender: ABBVIE
  Company Number: None

PATIENT
  Age: 1 Year
  Sex: Male
  Weight: 11 kg

DRUGS (1)
  1. DALBAVANCIN [Suspect]
     Active Substance: DALBAVANCIN
     Indication: Infection
     Dosage: TIME INTERVAL: AS NECESSARY: 250MG STAT
     Route: 065
     Dates: start: 20240829

REACTIONS (2)
  - Liver function test increased [Recovering/Resolving]
  - Rash [Unknown]

NARRATIVE: CASE EVENT DATE: 20240101
